FAERS Safety Report 6461033-7 (Version None)
Quarter: 2009Q4

REPORT INFORMATION
  Report Type: 
  Country: None (occurrence: None)
  Receive Date: 20091130
  Receipt Date: 20091125
  Transmission Date: 20100525
  Serious: Yes (Hospitalization)
  Sender: FDA-Public Use
  Company Number: B0575318A

PATIENT
  Sex: Female

DRUGS (1)
  1. CLAVULIN [Suspect]
     Indication: EAR INFECTION
     Dosage: 7.4ML PER DAY
     Route: 048
     Dates: start: 20081105, end: 20081113

REACTIONS (3)
  - ARTHRALGIA [None]
  - DERMATITIS ALLERGIC [None]
  - SYNOVITIS [None]
